FAERS Safety Report 6959267-8 (Version None)
Quarter: 2010Q3

REPORT INFORMATION
  Report Type: 
  Country: None (occurrence: None)
  Receive Date: 20100831
  Receipt Date: 20100806
  Transmission Date: 20110219
  Serious: No
  Sender: FDA-Public Use
  Company Number: US-PFIZER INC-2008051816

PATIENT
  Sex: Female
  Weight: 90 kg

DRUGS (9)
  1. CHANTIX [Suspect]
     Dosage: 1 MG, 3X/DAY
     Route: 048
     Dates: start: 20080605
  2. DEPAKOTE [Concomitant]
     Dates: start: 20060601
  3. GEODON [Concomitant]
     Dates: start: 20060601
  4. VISTARIL [Concomitant]
  5. PRAZOSIN HCL [Concomitant]
  6. CELEXA [Concomitant]
     Dosage: UNK
  7. PRILOSEC [Concomitant]
     Dosage: UNK
  8. ZESTRIL [Suspect]
     Dosage: UNK
  9. PERCOCET [Suspect]
     Dosage: UNK

REACTIONS (8)
  - ABNORMAL DREAMS [None]
  - BARRETT'S OESOPHAGUS [None]
  - COLD SWEAT [None]
  - CONFUSIONAL STATE [None]
  - DRUG DOSE OMISSION [None]
  - HYPERHIDROSIS [None]
  - TREMOR [None]
  - WITHDRAWAL SYNDROME [None]
